FAERS Safety Report 18073000 (Version 1)
Quarter: 2020Q3

REPORT INFORMATION
  Report Type: Spontaneous
  Country: US (occurrence: US)
  Receive Date: 20200727
  Receipt Date: 20200727
  Transmission Date: 20201103
  Serious: Yes (Life-Threatening, Hospitalization, Disabling)
  Sender: FDA-Public Use
  Company Number: None

PATIENT
  Age: 38 Year
  Sex: Male
  Weight: 85.05 kg

DRUGS (1)
  1. AXITINIB [Suspect]
     Active Substance: AXITINIB
     Indication: RENAL CELL CARCINOMA
     Route: 048
     Dates: start: 20191013, end: 20191116

REACTIONS (3)
  - Neoplasm malignant [None]
  - Condition aggravated [None]
  - Angiopathy [None]

NARRATIVE: CASE EVENT DATE: 20191116
